FAERS Safety Report 13670329 (Version 2)
Quarter: 2017Q3

REPORT INFORMATION
  Report Type: Spontaneous
  Country: DE (occurrence: DE)
  Receive Date: 20170620
  Receipt Date: 20170720
  Transmission Date: 20171127
  Serious: Yes (Hospitalization, Other)
  Sender: FDA-Public Use
  Company Number: PHHY2017DE088246

PATIENT
  Sex: Male
  Weight: 80 kg

DRUGS (1)
  1. EXJADE [Suspect]
     Active Substance: DEFERASIROX
     Indication: MYELODYSPLASTIC SYNDROME
     Dosage: 4 DF, QD (4 TABLETS OF 360 MG)
     Route: 065
     Dates: start: 2016, end: 201705

REACTIONS (6)
  - Gastroenteritis clostridial [Unknown]
  - Malaise [Unknown]
  - Campylobacter gastroenteritis [Unknown]
  - Diarrhoea [Unknown]
  - Renal impairment [Unknown]
  - Serum ferritin increased [Unknown]
